FAERS Safety Report 5707439-2 (Version None)
Quarter: 2008Q2

REPORT INFORMATION
  Report Type: 
  Country: None (occurrence: None)
  Receive Date: 20080416
  Receipt Date: 20080401
  Transmission Date: 20081010
  Serious: Yes (Death, Hospitalization, Other)
  Sender: FDA-Public Use
  Company Number: NL-GENENTECH-257589

PATIENT
  Age: 68 Year
  Sex: Male

DRUGS (9)
  1. AVASTIN [Suspect]
     Indication: RECTAL CANCER
     Dosage: UNK, UNK
     Dates: start: 20070914
  2. XELODA [Suspect]
     Indication: RECTAL CANCER
     Dates: start: 20070914
  3. OXALIPLATIN [Suspect]
     Indication: RECTAL CANCER
     Dates: start: 20070914
  4. LOPERAMIDE HCL [Concomitant]
     Indication: DIARRHOEA
  5. AUGMENTIN '125' [Concomitant]
     Indication: DRUG USE FOR UNKNOWN INDICATION
  6. GENTAMICIN [Concomitant]
     Indication: DRUG USE FOR UNKNOWN INDICATION
  7. FLUCONAZOLE [Concomitant]
     Indication: DRUG USE FOR UNKNOWN INDICATION
  8. BICARBONATE [Concomitant]
     Indication: DRUG USE FOR UNKNOWN INDICATION
  9. FRAGMIN [Concomitant]
     Indication: DRUG USE FOR UNKNOWN INDICATION

REACTIONS (4)
  - DIARRHOEA [None]
  - EMBOLISM [None]
  - HYPOTENSION [None]
  - PYREXIA [None]
